FAERS Safety Report 6107204-0 (Version None)
Quarter: 2009Q1

REPORT INFORMATION
  Report Type: 
  Country: None (occurrence: None)
  Receive Date: 20090305
  Receipt Date: 20090305
  Transmission Date: 20090719
  Serious: Yes (Hospitalization)
  Sender: FDA-Public Use
  Company Number: None

PATIENT
  Sex: Male
  Weight: 77 kg

DRUGS (2)
  1. VANCOMYCIN HCL [Suspect]
     Indication: PNEUMONIA
     Dosage: 1500MG Q 12 HOURS IVPB; 1250MG Q 12 HOURS IVPB
     Route: 042
     Dates: start: 20090216, end: 20090222
  2. VANCOMYCIN HCL [Suspect]
     Indication: PNEUMONIA
     Dosage: 1500MG Q 12 HOURS IVPB; 1250MG Q 12 HOURS IVPB
     Route: 042
     Dates: start: 20090216

REACTIONS (2)
  - DIALYSIS [None]
  - RENAL INJURY [None]
